FAERS Safety Report 10876904 (Version 2)
Quarter: 2015Q2

REPORT INFORMATION
  Report Type: Spontaneous
  Country: US (occurrence: US)
  Receive Date: 20150302
  Receipt Date: 20150521
  Transmission Date: 20150821
  Serious: Yes (Hospitalization, Other)
  Sender: FDA-Public Use
  Company Number: US-PFIZER INC-2015070900

PATIENT
  Age: 85 Year
  Sex: Female
  Weight: 73 kg

DRUGS (3)
  1. LYRICA [Suspect]
     Active Substance: PREGABALIN
     Dosage: 50 MG, 2X/DAY
     Dates: start: 2010
  2. OXYGEN. [Concomitant]
     Active Substance: OXYGEN
     Dosage: UNK
     Dates: start: 2014
  3. LYRICA [Suspect]
     Active Substance: PREGABALIN
     Indication: FIBROMYALGIA
     Dosage: 100 MG, 2X/DAY
     Route: 048

REACTIONS (2)
  - Myelodysplastic syndrome [Not Recovered/Not Resolved]
  - Cerebral thrombosis [Recovered/Resolved]

NARRATIVE: CASE EVENT DATE: 201406
